FAERS Safety Report 9784266 (Version 1)
Quarter: 2013Q4

REPORT INFORMATION
  Report Type: Spontaneous
  Country: US (occurrence: US)
  Receive Date: 20131226
  Receipt Date: 20131226
  Transmission Date: 20140711
  Serious: No
  Sender: FDA-Public Use
  Company Number: US-BIOGENIDEC-2013BI121905

PATIENT
  Age: 43 Year
  Sex: Female

DRUGS (6)
  1. TECFIDERA [Suspect]
     Indication: MULTIPLE SCLEROSIS
     Route: 048
     Dates: start: 20131126
  2. SYNTHROID [Concomitant]
  3. TOPAMAX [Concomitant]
  4. AMITIZA [Concomitant]
  5. PROVIGIL [Concomitant]
  6. EFFEXOR XR [Concomitant]

REACTIONS (3)
  - Headache [Unknown]
  - Urinary tract infection [Unknown]
  - Nausea [Unknown]
